FAERS Safety Report 11507402 (Version 1)
Quarter: 2015Q3

REPORT INFORMATION
  Report Type: Spontaneous
  Country: US (occurrence: None)
  Receive Date: 20150914
  Receipt Date: 20150914
  Transmission Date: 20151125
  Serious: No
  Sender: FDA-Public Use
  Company Number: None

PATIENT
  Age: 45 Year
  Sex: Female
  Weight: 95 kg

DRUGS (1)
  1. CARBOPLATIN. [Suspect]
     Active Substance: CARBOPLATIN
     Route: 042

REACTIONS (5)
  - Pruritus [None]
  - Rash [None]
  - Flushing [None]
  - Infusion related reaction [None]
  - Dysphagia [None]

NARRATIVE: CASE EVENT DATE: 20150908
